FAERS Safety Report 17882363 (Version 10)
Quarter: 2022Q4

REPORT INFORMATION
  Report Type: Spontaneous
  Country: GB (occurrence: GB)
  Receive Date: 20200610
  Receipt Date: 20221111
  Transmission Date: 20230112
  Serious: Yes (Death, Other)
  Sender: FDA-Public Use
  Company Number: GB-009507513-2006GBR000756

PATIENT
  Age: 57 Year
  Sex: Male

DRUGS (70)
  1. ACYCLOVIR [Suspect]
     Active Substance: ACYCLOVIR
     Indication: Product used for unknown indication
     Route: 065
  2. ACYCLOVIR [Suspect]
     Active Substance: ACYCLOVIR
     Route: 065
  3. ACYCLOVIR [Suspect]
     Active Substance: ACYCLOVIR
     Route: 065
  4. ACYCLOVIR [Suspect]
     Active Substance: ACYCLOVIR
     Route: 065
  5. ACYCLOVIR [Suspect]
     Active Substance: ACYCLOVIR
     Indication: Product used for unknown indication
     Route: 065
  6. ACYCLOVIR [Suspect]
     Active Substance: ACYCLOVIR
     Route: 065
  7. RAMIPRIL [Suspect]
     Active Substance: RAMIPRIL
     Indication: Product used for unknown indication
     Route: 065
  8. NORVIR [Suspect]
     Active Substance: RITONAVIR
     Indication: Product used for unknown indication
     Dosage: 100 MILLIGRAM, ONCE A DAY(100 MILLIGRAM , BID)
     Route: 065
  9. NORVIR [Suspect]
     Active Substance: RITONAVIR
     Dosage: UNK, QD
     Route: 065
  10. NORVIR [Suspect]
     Active Substance: RITONAVIR
     Dosage: 100 MILLIGRAM, QD (100 MG, 1X/DAY)
     Route: 065
  11. NORVIR [Suspect]
     Active Substance: RITONAVIR
     Route: 065
  12. DARUNAVIR [Suspect]
     Active Substance: DARUNAVIR
     Indication: Product used for unknown indication
     Route: 065
  13. DARUNAVIR [Suspect]
     Active Substance: DARUNAVIR
     Route: 065
  14. DARUNAVIR [Suspect]
     Active Substance: DARUNAVIR
     Route: 048
  15. DARUNAVIR [Suspect]
     Active Substance: DARUNAVIR
     Route: 048
  16. DARUNAVIR [Suspect]
     Active Substance: DARUNAVIR
     Route: 065
  17. DARUNAVIR [Suspect]
     Active Substance: DARUNAVIR
     Route: 065
  18. LAMIVUDINE [Suspect]
     Active Substance: LAMIVUDINE
     Indication: Product used for unknown indication
     Dosage: 300 MG (150 MILLIGRAM, BID)
     Route: 065
  19. LAMIVUDINE [Suspect]
     Active Substance: LAMIVUDINE
     Route: 065
  20. LAMIVUDINE [Suspect]
     Active Substance: LAMIVUDINE
     Route: 065
  21. LAMIVUDINE [Suspect]
     Active Substance: LAMIVUDINE
     Route: 065
  22. LAMIVUDINE [Suspect]
     Active Substance: LAMIVUDINE
     Route: 065
  23. LAMIVUDINE [Suspect]
     Active Substance: LAMIVUDINE
     Route: 065
  24. ISENTRESS [Suspect]
     Active Substance: RALTEGRAVIR POTASSIUM
     Indication: Product used for unknown indication
     Dosage: 400 MILLIGRAM, QD
     Route: 048
  25. ISENTRESS [Suspect]
     Active Substance: RALTEGRAVIR POTASSIUM
     Dosage: 2X/DAY
     Route: 065
  26. ISENTRESS [Suspect]
     Active Substance: RALTEGRAVIR POTASSIUM
     Dosage: 400 MILLIGRAM, QD
     Route: 048
  27. ISENTRESS [Suspect]
     Active Substance: RALTEGRAVIR POTASSIUM
     Dosage: DF, 2X/DAY (ONCE A DAY, BID)
     Route: 048
  28. ISENTRESS [Suspect]
     Active Substance: RALTEGRAVIR POTASSIUM
     Dosage: DF, 2X/DAY (ONCE A DAY, BID)
     Route: 048
  29. PREZISTA [Suspect]
     Active Substance: DARUNAVIR ETHANOLATE
     Indication: Product used for unknown indication
     Dosage: UNK, QD
     Route: 065
  30. PREZISTA [Suspect]
     Active Substance: DARUNAVIR ETHANOLATE
     Dosage: 600 MILLIGRAM, QD
     Route: 065
  31. PREZISTA [Suspect]
     Active Substance: DARUNAVIR ETHANOLATE
     Dosage: UNK, BID
     Route: 065
  32. TENOFOVIR DISOPROXIL FUMARATE [Suspect]
     Active Substance: TENOFOVIR DISOPROXIL FUMARATE
     Indication: Product used for unknown indication
     Route: 065
  33. TENOFOVIR DISOPROXIL FUMARATE [Suspect]
     Active Substance: TENOFOVIR DISOPROXIL FUMARATE
     Route: 065
  34. TENOFOVIR DISOPROXIL FUMARATE [Suspect]
     Active Substance: TENOFOVIR DISOPROXIL FUMARATE
     Route: 065
  35. TENOFOVIR DISOPROXIL FUMARATE [Suspect]
     Active Substance: TENOFOVIR DISOPROXIL FUMARATE
     Route: 065
  36. TENOFOVIR DISOPROXIL FUMARATE [Suspect]
     Active Substance: TENOFOVIR DISOPROXIL FUMARATE
     Dosage: 150 MILLIGRAM, QD
     Route: 065
  37. LAMIVUDINE [Suspect]
     Active Substance: LAMIVUDINE
     Indication: Product used for unknown indication
     Dosage: 300 MILLIGRAM, QD ,(BID)
     Route: 065
  38. LAMIVUDINE [Suspect]
     Active Substance: LAMIVUDINE
     Dosage: 150 MILLIGRAM, BID
     Route: 065
  39. VIREAD [Suspect]
     Active Substance: TENOFOVIR DISOPROXIL FUMARATE
     Indication: Product used for unknown indication
     Route: 065
  40. ACYCLOVIR [Suspect]
     Active Substance: ACYCLOVIR
     Indication: Product used for unknown indication
     Route: 065
  41. RITONAVIR [Suspect]
     Active Substance: RITONAVIR
     Indication: Product used for unknown indication
     Dosage: 100 MILLIGRAM, ONCE A DAY(100 MILLIGRAM , BID)
     Route: 065
  42. RITONAVIR [Suspect]
     Active Substance: RITONAVIR
     Dosage: UNK, QD
     Route: 065
  43. RITONAVIR [Suspect]
     Active Substance: RITONAVIR
     Dosage: 100 MILLIGRAM, QD (100 MG, 1X/DAY)
     Route: 065
  44. RITONAVIR [Suspect]
     Active Substance: RITONAVIR
     Route: 065
  45. RITONAVIR [Suspect]
     Active Substance: RITONAVIR
     Route: 065
  46. RITONAVIR [Suspect]
     Active Substance: RITONAVIR
     Route: 065
  47. RITONAVIR [Suspect]
     Active Substance: RITONAVIR
     Route: 065
  48. RITONAVIR [Suspect]
     Active Substance: RITONAVIR
     Route: 065
  49. TENOFOVIR DISOPROXIL FUMARATE [Suspect]
     Active Substance: TENOFOVIR DISOPROXIL FUMARATE
     Indication: Product used for unknown indication
     Route: 065
  50. DARUNAVIR ETHANOLATE [Suspect]
     Active Substance: DARUNAVIR ETHANOLATE
     Indication: Product used for unknown indication
     Dosage: UNK, QD
     Route: 065
  51. DARUNAVIR ETHANOLATE [Suspect]
     Active Substance: DARUNAVIR ETHANOLATE
     Dosage: 600 MILLIGRAM, QD
     Route: 065
  52. DARUNAVIR ETHANOLATE [Suspect]
     Active Substance: DARUNAVIR ETHANOLATE
     Dosage: UNK, BID
     Route: 065
  53. DARUNAVIR ETHANOLATE [Suspect]
     Active Substance: DARUNAVIR ETHANOLATE
     Dosage: 600 MILLIGRAM, QD
     Route: 048
  54. DARUNAVIR ETHANOLATE [Suspect]
     Active Substance: DARUNAVIR ETHANOLATE
     Route: 048
  55. DARUNAVIR ETHANOLATE [Suspect]
     Active Substance: DARUNAVIR ETHANOLATE
     Route: 065
  56. DARUNAVIR ETHANOLATE [Suspect]
     Active Substance: DARUNAVIR ETHANOLATE
     Route: 065
  57. RALTEGRAVIR [Suspect]
     Active Substance: RALTEGRAVIR
     Indication: Product used for unknown indication
     Dosage: 400 MILLIGRAM, QD
     Route: 048
  58. RALTEGRAVIR [Suspect]
     Active Substance: RALTEGRAVIR
     Dosage: 2X/DAY
     Route: 065
  59. RALTEGRAVIR [Suspect]
     Active Substance: RALTEGRAVIR
     Dosage: 400 MILLIGRAM, QD
     Route: 065
  60. RALTEGRAVIR [Suspect]
     Active Substance: RALTEGRAVIR
     Dosage: DF, 2X/DAY (ONCE A DAY, BID)
     Route: 048
  61. RALTEGRAVIR [Suspect]
     Active Substance: RALTEGRAVIR
     Dosage: DF, 2X/DAY (ONCE A DAY, BID)
     Route: 048
  62. RALTEGRAVIR [Suspect]
     Active Substance: RALTEGRAVIR
     Route: 048
  63. RALTEGRAVIR [Suspect]
     Active Substance: RALTEGRAVIR
     Route: 048
  64. RALTEGRAVIR [Suspect]
     Active Substance: RALTEGRAVIR
     Route: 048
  65. RALTEGRAVIR [Suspect]
     Active Substance: RALTEGRAVIR
     Route: 065
  66. RALTEGRAVIR [Suspect]
     Active Substance: RALTEGRAVIR
     Route: 065
  67. RALTEGRAVIR [Suspect]
     Active Substance: RALTEGRAVIR
     Route: 065
  68. RALTEGRAVIR [Suspect]
     Active Substance: RALTEGRAVIR
     Route: 048
  69. RALTEGRAVIR [Suspect]
     Active Substance: RALTEGRAVIR
     Route: 048
  70. RAMIPRIL [Concomitant]
     Active Substance: RAMIPRIL
     Indication: Product used for unknown indication
     Route: 065

REACTIONS (3)
  - Death [Fatal]
  - Fall [Fatal]
  - Brain stem stroke [Fatal]

NARRATIVE: CASE EVENT DATE: 20200401
